FAERS Safety Report 8127366-3 (Version None)
Quarter: 2012Q1

REPORT INFORMATION
  Report Type: 
  Country: None (occurrence: None)
  Receive Date: 20120210
  Receipt Date: 20120202
  Transmission Date: 20120608
  Serious: Yes (Hospitalization)
  Sender: FDA-Public Use
  Company Number: IT-BRISTOL-MYERS SQUIBB COMPANY-16385031

PATIENT
  Age: 66 Year
  Sex: Female

DRUGS (4)
  1. ISOPTIN [Concomitant]
     Route: 048
  2. COUMADIN [Suspect]
     Indication: DEEP VEIN THROMBOSIS
     Dosage: INTERRUPT ON 07AUG2010
     Dates: start: 20060401
  3. PREDNISONE TAB [Concomitant]
     Dosage: TABS
  4. MEDROL [Concomitant]

REACTIONS (2)
  - ANAEMIA [None]
  - MUSCLE HAEMORRHAGE [None]
